FAERS Safety Report 17616664 (Version 1)
Quarter: 2020Q1

REPORT INFORMATION
  Report Type: Spontaneous
  Country: US (occurrence: US)
  Receive Date: 20200331
  Receipt Date: 20200331
  Transmission Date: 20200409
  Serious: No
  Sender: FDA-Public Use
  Company Number: None

PATIENT
  Age: 34 Year

DRUGS (1)
  1. OCTREOTIDE 50MCG/ML SDV INJ [Suspect]
     Active Substance: OCTREOTIDE ACETATE
     Indication: HYPOGLYCAEMIA
     Dosage: ?          OTHER DOSE:50MCG/ML;?
     Route: 058
     Dates: start: 202003

REACTIONS (2)
  - Off label use [None]
  - Hypoglycaemia [None]

NARRATIVE: CASE EVENT DATE: 20200331
